FAERS Safety Report 16993137 (Version 1)
Quarter: 2019Q4

REPORT INFORMATION
  Report Type: Spontaneous
  Country: CN (occurrence: CN)
  Receive Date: 20191105
  Receipt Date: 20191105
  Transmission Date: 20200122
  Serious: Yes (Hospitalization, Other)
  Sender: FDA-Public Use
  Company Number: CN-GALDERMA-CN19063180

PATIENT
  Age: 45 Year
  Sex: Male
  Weight: 77 kg

DRUGS (8)
  1. CALCITRIOL. [Suspect]
     Active Substance: CALCITRIOL
     Indication: PRODUCT USED FOR UNKNOWN INDICATION
     Route: 061
  2. RABEPRAZOLE [Concomitant]
     Active Substance: RABEPRAZOLE
     Indication: PRODUCT USED FOR UNKNOWN INDICATION
     Route: 065
  3. MYCOPHENOLATE MOFETIL. [Concomitant]
     Active Substance: MYCOPHENOLATE MOFETIL
     Indication: IMMUNOSUPPRESSANT DRUG THERAPY
     Dosage: 1500 MG/DAY
     Route: 065
     Dates: start: 201708
  4. TACROLIMUS. [Concomitant]
     Active Substance: TACROLIMUS
     Indication: IMMUNOSUPPRESSANT DRUG THERAPY
     Dosage: 6 MG/DAY (0.078 MG/KG/DAY)
     Route: 065
     Dates: start: 201708, end: 201710
  5. CORTICOSTEROIDS [Concomitant]
     Active Substance: CORTICOSTEROID NOS
     Dosage: 5 MG/DAY
     Route: 065
     Dates: start: 201710
  6. BASILIXIMAB [Concomitant]
     Active Substance: BASILIXIMAB
     Indication: LYMPHOCYTE ADOPTIVE THERAPY
     Dosage: 20 MG
     Route: 042
     Dates: start: 201708
  7. NIFEDIPINE. [Concomitant]
     Active Substance: NIFEDIPINE
     Indication: PRODUCT USED FOR UNKNOWN INDICATION
     Route: 065
  8. CORTICOSTEROIDS [Concomitant]
     Active Substance: CORTICOSTEROID NOS
     Indication: PRODUCT USED FOR UNKNOWN INDICATION
     Dosage: 35 MG/DAY
     Route: 065
     Dates: start: 201708, end: 201710

REACTIONS (10)
  - Abdominal pain [Recovered/Resolved]
  - Lipase increased [Recovered/Resolved]
  - Azotaemia [Recovered/Resolved]
  - Nausea [Recovered/Resolved]
  - Blood glucose increased [Recovering/Resolving]
  - Vomiting [Recovered/Resolved]
  - Pancreatitis [Recovered/Resolved]
  - Diabetic ketoacidosis [Recovering/Resolving]
  - Gastrointestinal sounds abnormal [Recovered/Resolved]
  - Amylase increased [Recovered/Resolved]

NARRATIVE: CASE EVENT DATE: 201710
